FAERS Safety Report 7357674-5 (Version None)
Quarter: 2011Q1

REPORT INFORMATION
  Report Type: 
  Country: None (occurrence: None)
  Receive Date: 20110314
  Receipt Date: 20110314
  Transmission Date: 20110831
  Serious: Yes (Life-Threatening, Hospitalization, Disabling)
  Sender: FDA-Public Use
  Company Number: None

PATIENT
  Age: 94 Year
  Sex: Male
  Weight: 72.1219 kg

DRUGS (4)
  1. LOSARTAN POTASSIUM [Suspect]
     Indication: HYPERTENSION
     Dosage: PINK DAILY ONE PER DAY PO
     Route: 048
     Dates: start: 20110107, end: 20110220
  2. LOSARTAN POTASSIUM [Suspect]
     Indication: HYPERTENSION
     Dosage: WHITE DAILY ONE PER DAY PO
     Route: 048
     Dates: start: 20100805, end: 20110106
  3. COZAAR [Suspect]
  4. HYDROCHLOROTHIAZIDE [Concomitant]

REACTIONS (2)
  - CEREBROVASCULAR ACCIDENT [None]
  - UNEVALUABLE EVENT [None]
